FAERS Safety Report 8716033 (Version 2)
Quarter: 2012Q4

REPORT INFORMATION
  Report Type: Report from Study
  Country: FR (occurrence: FR)
  Receive Date: 20120809
  Receipt Date: 20121001
  Transmission Date: 20130627
  Serious: Yes (Hospitalization)
  Sender: FDA-Public Use
  Company Number: FR-ROCHE-1096916

PATIENT
  Age: 51 Year
  Sex: Male
  Weight: 75.5 kg

DRUGS (12)
  1. MABTHERA [Suspect]
     Indication: MALIGNANT LYMPHOID NEOPLASM
     Route: 065
     Dates: start: 201201, end: 201205
  2. MABTHERA [Suspect]
     Route: 042
     Dates: start: 20120518, end: 20120518
  3. CARMUSTINE [Suspect]
     Indication: MALIGNANT LYMPHOID NEOPLASM
     Route: 065
     Dates: start: 20120518, end: 20120518
  4. ETOPOSIDE [Suspect]
     Indication: MALIGNANT LYMPHOID NEOPLASM
     Route: 065
     Dates: start: 20120519, end: 20120522
  5. CYTARABINE [Suspect]
     Indication: MALIGNANT LYMPHOID NEOPLASM
     Route: 065
     Dates: start: 20120519, end: 20120522
  6. MELPHALAN [Suspect]
     Indication: MALIGNANT LYMPHOID NEOPLASM
     Route: 065
     Dates: start: 20120523, end: 20120523
  7. ZELITREX [Concomitant]
     Indication: ANTIVIRAL PROPHYLAXIS
     Route: 048
     Dates: start: 20120116
  8. INEXIUM [Concomitant]
     Indication: PROPHYLAXIS AGAINST GASTROINTESTINAL ULCER
     Route: 048
     Dates: start: 20120116
  9. LEDERFOLINE [Concomitant]
     Route: 048
     Dates: start: 20120116
  10. FUNGIZONE [Concomitant]
     Route: 065
     Dates: start: 20120116
  11. LANSOYL [Concomitant]
  12. PENTAMIDINE [Concomitant]
     Route: 065
     Dates: start: 20120613

REACTIONS (1)
  - Colitis [Recovered/Resolved]
